FAERS Safety Report 15849764 (Version 2)
Quarter: 2019Q1

REPORT INFORMATION
  Report Type: Report from Study
  Country: DE (occurrence: DE)
  Receive Date: 20190121
  Receipt Date: 20190322
  Transmission Date: 20190417
  Serious: Yes (Other)
  Sender: FDA-Public Use
  Company Number: DE-MYLANLABS-2019M1005028

PATIENT
  Age: 8 Year

DRUGS (4)
  1. FOLIC ACID. [Concomitant]
     Active Substance: FOLIC ACID
     Indication: PRODUCT USED FOR UNKNOWN INDICATION
     Dosage: UNK
     Dates: start: 20160910
  2. HUMIRA [Suspect]
     Active Substance: ADALIMUMAB
     Indication: JUVENILE IDIOPATHIC ARTHRITIS
     Dosage: 20 MILLIGRAM, BIWEEKLY
     Route: 058
     Dates: start: 20160913, end: 201802
  3. METHOTREXATE. [Suspect]
     Active Substance: METHOTREXATE
     Indication: PRODUCT USED FOR UNKNOWN INDICATION
     Dosage: 10 MILLIGRAM, QW
     Route: 065
     Dates: start: 20160913
  4. HUMIRA [Suspect]
     Active Substance: ADALIMUMAB
     Dosage: 20 MILLIGRAM, Q2W
     Route: 058
     Dates: start: 201802, end: 201803

REACTIONS (3)
  - Infection [Recovered/Resolved]
  - Drug specific antibody [Unknown]
  - Uveitis [Not Recovered/Not Resolved]

NARRATIVE: CASE EVENT DATE: 20180201
